FAERS Safety Report 6331969-6 (Version None)
Quarter: 2009Q3

REPORT INFORMATION
  Report Type: 
  Country: None (occurrence: None)
  Receive Date: 20090828
  Receipt Date: 20090820
  Transmission Date: 20100115
  Serious: Yes (Hospitalization)
  Sender: FDA-Public Use
  Company Number: US-BIOGENIDEC-2007BI004211

PATIENT
  Age: 46 Year
  Sex: Female

DRUGS (4)
  1. AVONEX [Suspect]
     Indication: MULTIPLE SCLEROSIS
     Route: 030
     Dates: start: 19980801, end: 20030801
  2. AVONEX [Suspect]
     Route: 030
     Dates: start: 20030801, end: 20030901
  3. AVONEX [Suspect]
     Route: 030
     Dates: start: 20030901, end: 20050401
  4. AVONEX [Suspect]
     Route: 030
     Dates: start: 20061023, end: 20070506

REACTIONS (2)
  - DEHYDRATION [None]
  - HYPOTENSION [None]
